FAERS Safety Report 10997516 (Version 2)
Quarter: 2015Q2

REPORT INFORMATION
  Report Type: Spontaneous
  Country: US (occurrence: US)
  Receive Date: 20150408
  Receipt Date: 20150507
  Transmission Date: 20150821
  Serious: No
  Sender: FDA-Public Use
  Company Number: US-PFIZER INC-2015118569

PATIENT
  Age: 33 Year
  Sex: Male
  Weight: 96 kg

DRUGS (7)
  1. VFEND [Suspect]
     Active Substance: VORICONAZOLE
     Indication: HISTOPLASMOSIS
     Dosage: 200 MG, 3X/DAY
     Route: 048
     Dates: start: 20150319
  2. VFEND [Suspect]
     Active Substance: VORICONAZOLE
     Indication: LUNG DISORDER
     Dosage: UNK
     Route: 048
  3. FLUTICASONE PROPIONATE. [Concomitant]
     Active Substance: FLUTICASONE PROPIONATE
     Dosage: 1500 MG, 2X/DAY
  4. VFEND [Suspect]
     Active Substance: VORICONAZOLE
     Indication: PNEUMONIA CRYPTOCOCCAL
  5. TRAMADOL [Concomitant]
     Active Substance: TRAMADOL
     Indication: SLEEP DISORDER
     Dosage: UNK
  6. PRILOSEC [Concomitant]
     Active Substance: OMEPRAZOLE MAGNESIUM
     Dosage: 20 MG, DAILY AT BED TIME
  7. CEFTIN [Concomitant]
     Active Substance: CEFUROXIME AXETIL
     Indication: SINUSITIS
     Dosage: 500 MG, 2X/DAY

REACTIONS (11)
  - Decreased appetite [Unknown]
  - Hyperaesthesia [Unknown]
  - Eye pain [Unknown]
  - Drug resistance [Unknown]
  - Malaise [Unknown]
  - Lymphadenopathy [Unknown]
  - Photosensitivity reaction [Unknown]
  - Sinusitis [Unknown]
  - Amnesia [Unknown]
  - Sunburn [Unknown]
  - Headache [Unknown]

NARRATIVE: CASE EVENT DATE: 201504
